FAERS Safety Report 25243653 (Version 1)
Quarter: 2025Q2

REPORT INFORMATION
  Report Type: Spontaneous
  Country: US (occurrence: US)
  Receive Date: 20250428
  Receipt Date: 20250428
  Transmission Date: 20250717
  Serious: Yes (Hospitalization)
  Sender: BAXTER
  Company Number: US-MLMSERVICE-20250411-PI476823-00140-1

PATIENT
  Age: 61 Year
  Sex: Female

DRUGS (12)
  1. CYCLOPHOSPHAMIDE [Suspect]
     Active Substance: CYCLOPHOSPHAMIDE
     Indication: T-cell lymphoma
     Route: 065
  2. CYCLOPHOSPHAMIDE [Suspect]
     Active Substance: CYCLOPHOSPHAMIDE
     Indication: Gastrointestinal lymphoma
  3. DOXORUBICIN [Suspect]
     Active Substance: DOXORUBICIN
     Indication: T-cell lymphoma
     Route: 065
  4. DOXORUBICIN [Suspect]
     Active Substance: DOXORUBICIN
     Indication: Gastrointestinal lymphoma
  5. ETOPOSIDE [Suspect]
     Active Substance: ETOPOSIDE
     Indication: T-cell lymphoma
     Route: 065
  6. ETOPOSIDE [Suspect]
     Active Substance: ETOPOSIDE
     Indication: Gastrointestinal lymphoma
  7. VINCRISTINE [Suspect]
     Active Substance: VINCRISTINE
     Indication: T-cell lymphoma
     Route: 065
  8. VINCRISTINE [Suspect]
     Active Substance: VINCRISTINE
     Indication: Gastrointestinal lymphoma
  9. PREDNISONE [Suspect]
     Active Substance: PREDNISONE
     Indication: T-cell lymphoma
     Route: 065
  10. PREDNISONE [Suspect]
     Active Substance: PREDNISONE
     Indication: Gastrointestinal lymphoma
  11. LIDOCAINE [Concomitant]
     Active Substance: LIDOCAINE
     Route: 065
  12. UNSPECIFIED INGREDIENT [Concomitant]
     Active Substance: UNSPECIFIED INGREDIENT
     Route: 065

REACTIONS (12)
  - Varicella zoster virus infection [Unknown]
  - Allodynia [Unknown]
  - Hyperaesthesia [Unknown]
  - Sensitive skin [Unknown]
  - Disseminated varicella zoster vaccine virus infection [Unknown]
  - Infection reactivation [Unknown]
  - Malabsorption [Unknown]
  - Abdominal pain [Recovered/Resolved]
  - Gastrointestinal scarring [Unknown]
  - Abdominal tenderness [Unknown]
  - Intra-abdominal fluid collection [Unknown]
  - Faecal volume increased [Unknown]
